FAERS Safety Report 13247709 (Version 1)
Quarter: 2017Q1

REPORT INFORMATION
  Report Type: Spontaneous
  Country: US (occurrence: US)
  Receive Date: 20170217
  Receipt Date: 20170217
  Transmission Date: 20170428
  Serious: No
  Sender: FDA-Public Use
  Company Number: US-LANTHEUS-LMI-2016-00232

PATIENT
  Age: 23 Year
  Sex: Female
  Weight: 94 kg

DRUGS (1)
  1. DEFINITY [Suspect]
     Active Substance: PERFLUTREN
     Indication: ECHOCARDIOGRAM
     Dosage: 1.5 ML, SINGLE
     Route: 040

REACTIONS (15)
  - Abdominal pain [Unknown]
  - Pharyngeal oedema [Unknown]
  - Dyspnoea [Unknown]
  - Burning sensation [Unknown]
  - Nausea [Unknown]
  - Throat irritation [Unknown]
  - Oropharyngeal pain [Unknown]
  - Sinus tachycardia [Recovered/Resolved]
  - Chest discomfort [Unknown]
  - Back pain [Unknown]
  - Pyrexia [Unknown]
  - Supraventricular tachycardia [Recovered/Resolved]
  - Streptococcus test [Unknown]
  - Dizziness [Unknown]
  - Disorientation [Unknown]

NARRATIVE: CASE EVENT DATE: 20160422
